FAERS Safety Report 7951856-7 (Version None)
Quarter: 2011Q4

REPORT INFORMATION
  Report Type: 
  Country: None (occurrence: None)
  Receive Date: 20111201
  Receipt Date: 20111123
  Transmission Date: 20120403
  Serious: Yes (Hospitalization, Other)
  Sender: FDA-Public Use
  Company Number: SE-SANOFI-AVENTIS-2011SA077136

PATIENT
  Age: 76 Year
  Sex: Male

DRUGS (12)
  1. LASIX [Concomitant]
     Route: 048
  2. LIPITOR [Concomitant]
     Route: 065
  3. GLYTRIN [Concomitant]
     Route: 060
  4. LISINOPRIL [Concomitant]
     Route: 048
  5. MULTAQ [Suspect]
     Indication: ATRIAL FIBRILLATION
     Route: 048
     Dates: start: 20100501, end: 20110501
  6. METOPROLOL TARTRATE [Concomitant]
     Route: 065
  7. WARFARIN SODIUM [Concomitant]
     Route: 048
  8. VESICARE [Concomitant]
     Route: 048
  9. ASPIRIN [Concomitant]
     Route: 065
  10. AMIODARONE HCL [Suspect]
     Indication: ATRIAL FIBRILLATION
     Route: 065
     Dates: start: 20090501
  11. XALATAN [Concomitant]
     Route: 048
  12. ALFUZOSIN HCL [Concomitant]
     Route: 048

REACTIONS (2)
  - CARDIAC FAILURE [None]
  - HEPATIC NEOPLASM MALIGNANT [None]
